FAERS Safety Report 6810907-3 (Version None)
Quarter: 2010Q2

REPORT INFORMATION
  Report Type: 
  Country: None (occurrence: None)
  Receive Date: 20100630
  Receipt Date: 20081004
  Transmission Date: 20101027
  Serious: No
  Sender: FDA-Public Use
  Company Number: US-PFIZER INC-2008083663

PATIENT
  Sex: Female
  Weight: 56.818 kg

DRUGS (4)
  1. ESTRING [Suspect]
     Indication: HORMONE REPLACEMENT THERAPY
  2. AMOXICILLIN [Suspect]
  3. FOSAMAX [Concomitant]
  4. VITAMINS [Concomitant]

REACTIONS (2)
  - COUGH [None]
  - FUNGAL INFECTION [None]
